FAERS Safety Report 9838052 (Version 1)
Quarter: 2014Q1

REPORT INFORMATION
  Report Type: Spontaneous
  Country: FR (occurrence: FR)
  Receive Date: 20140123
  Receipt Date: 20140123
  Transmission Date: 20141002
  Serious: Yes (Hospitalization, Other)
  Sender: FDA-Public Use
  Company Number: FR-PFIZER INC-2014018055

PATIENT
  Age: 85 Year
  Sex: Male

DRUGS (8)
  1. XANAX [Suspect]
     Indication: BIPOLAR I DISORDER
     Dosage: 1.5 MG (0.50 MG, 3 DOSAGE FORMS), DAILY
     Route: 048
     Dates: start: 2012, end: 20140101
  2. ANAFRANIL [Suspect]
     Indication: BIPOLAR I DISORDER
     Dosage: 75 MG (75 MG, 1 DOSAGE FORM), 1X/DAY (IN THE EVENING)
     Route: 048
     Dates: end: 20140101
  3. ATARAX [Suspect]
     Indication: BIPOLAR I DISORDER
     Dosage: 50 MG (25 MG, 2 DOSAGE FORMS), DAILY
     Route: 048
     Dates: start: 20121210, end: 20140101
  4. MODOPAR [Suspect]
     Indication: DYSKINESIA
     Dosage: 3 DF, DAILY
     Route: 048
  5. MODOPAR [Suspect]
     Indication: EXTRAPYRAMIDAL DISORDER
  6. UVEDOSE [Concomitant]
     Dosage: UNK
  7. AVODART [Concomitant]
     Indication: BENIGN PROSTATIC HYPERPLASIA
     Dosage: UNK
  8. UROREC [Concomitant]
     Indication: BENIGN PROSTATIC HYPERPLASIA
     Dosage: UNK

REACTIONS (5)
  - Urinary retention [Recovered/Resolved]
  - Confusional state [Not Recovered/Not Resolved]
  - Fall [Recovered/Resolved]
  - Disorientation [Unknown]
  - Cognitive disorder [Unknown]
